FAERS Safety Report 8411484-6 (Version None)
Quarter: 2012Q2

REPORT INFORMATION
  Report Type: 
  Country: None (occurrence: None)
  Receive Date: 20120531
  Receipt Date: 20120531
  Transmission Date: 20120825
  Serious: No
  Sender: FDA-Public Use
  Company Number: None

PATIENT
  Age: 67 Year
  Sex: Female
  Weight: 63.5036 kg

DRUGS (2)
  1. BONIVA [Suspect]
     Indication: OSTEOPENIA
     Dosage: 150 MG - 1 MONTHLY ORAL SEVERAL YEARS
     Route: 048
     Dates: start: 20120507
  2. BONIVA [Suspect]
     Indication: OSTEOPENIA
     Dosage: 150 MG - 1 MONTHLY ORAL SEVERAL YEARS
     Route: 048
     Dates: start: 20120406

REACTIONS (3)
  - URINARY TRACT DISORDER [None]
  - INCONTINENCE [None]
  - URINARY TRACT PAIN [None]
